FAERS Safety Report 26191529 (Version 1)
Quarter: 2025Q4

REPORT INFORMATION
  Report Type: Spontaneous
  Country: US (occurrence: US)
  Receive Date: 20251223
  Receipt Date: 20251223
  Transmission Date: 20260117
  Serious: Yes (Other)
  Sender: MYLAN
  Company Number: US-MYLANLABS-2025M1108793

PATIENT
  Age: 77 Year
  Sex: Male

DRUGS (8)
  1. LEVOTHYROXINE [Suspect]
     Active Substance: LEVOTHYROXINE
     Indication: Follicular thyroid cancer
     Dosage: UNK, RECEIVED TWO ROUNDS
  2. LEVOTHYROXINE [Suspect]
     Active Substance: LEVOTHYROXINE
     Indication: Thyroid cancer metastatic
     Dosage: UNK, RECEIVED TWO ROUNDS
     Route: 065
  3. LEVOTHYROXINE [Suspect]
     Active Substance: LEVOTHYROXINE
     Dosage: UNK, RECEIVED TWO ROUNDS
     Route: 065
  4. LEVOTHYROXINE [Suspect]
     Active Substance: LEVOTHYROXINE
     Dosage: UNK, RECEIVED TWO ROUNDS
  5. SODIUM IODIDE I-131 [Suspect]
     Active Substance: SODIUM IODIDE I-131
     Indication: Follicular thyroid cancer
     Dosage: UNK, RECEIVED TWO ROUNDS
  6. SODIUM IODIDE I-131 [Suspect]
     Active Substance: SODIUM IODIDE I-131
     Indication: Thyroid cancer metastatic
     Dosage: UNK, RECEIVED TWO ROUNDS
     Route: 065
  7. SODIUM IODIDE I-131 [Suspect]
     Active Substance: SODIUM IODIDE I-131
     Dosage: UNK, RECEIVED TWO ROUNDS
     Route: 065
  8. SODIUM IODIDE I-131 [Suspect]
     Active Substance: SODIUM IODIDE I-131
     Dosage: UNK, RECEIVED TWO ROUNDS

REACTIONS (1)
  - Drug ineffective [Unknown]
